FAERS Safety Report 23451216 (Version 1)
Quarter: 2024Q1

REPORT INFORMATION
  Report Type: Spontaneous
  Country: CN (occurrence: CN)
  Receive Date: 20240129
  Receipt Date: 20240129
  Transmission Date: 20240410
  Serious: Yes (Other)
  Sender: FDA-Public Use
  Company Number: CN-JNJFOC-20240156842

PATIENT
  Age: 81 Year
  Sex: Female
  Weight: 48 kg

DRUGS (2)
  1. TYLENOL 8HR [Suspect]
     Active Substance: ACETAMINOPHEN
     Indication: Antipyresis
     Route: 048
     Dates: start: 20240111, end: 20240112
  2. GAN MAO QING RE [Concomitant]
     Indication: Nasopharyngitis
     Route: 048
     Dates: start: 20240112, end: 20240112

REACTIONS (4)
  - Dry mouth [Recovered/Resolved]
  - Oropharyngeal discomfort [Recovered/Resolved]
  - Asthenia [Recovered/Resolved]
  - Drug hypersensitivity [Recovered/Resolved]

NARRATIVE: CASE EVENT DATE: 20240112
